FAERS Safety Report 15371582 (Version 5)
Quarter: 2019Q1

REPORT INFORMATION
  Report Type: Report from Study
  Country: IT (occurrence: IT)
  Receive Date: 20180911
  Receipt Date: 20190306
  Transmission Date: 20190417
  Serious: Yes (Hospitalization)
  Sender: FDA-Public Use
  Company Number: IT-EXELIXIS-XL18418015761

PATIENT
  Age: 68 Year
  Sex: Female
  Weight: 45.3 kg

DRUGS (15)
  1. BLINDED XL184 [Suspect]
     Active Substance: CABOZANTINIB
     Indication: MEDULLARY THYROID CANCER
     Dosage: 140 OR 60 MG, QD
     Route: 048
     Dates: start: 20180709
  2. BLINDED XL184 [Suspect]
     Active Substance: CABOZANTINIB
     Dosage: 100 OR 40 MG, QD
     Route: 048
     Dates: start: 20180913
  3. NORVASC [Concomitant]
     Active Substance: AMLODIPINE BESYLATE
  4. BISOPROLOLO [Concomitant]
     Active Substance: BISOPROLOL FUMARATE
  5. ANNISTER [Concomitant]
     Active Substance: CHOLECALCIFEROL
  6. EUTIROX [Concomitant]
     Active Substance: LEVOTHYROXINE SODIUM
  7. PEPTAZOL [Concomitant]
     Active Substance: PANTOPRAZOLE SODIUM
  8. CARDIOASPIRINA [Concomitant]
     Active Substance: ASPIRIN
  9. DELTACORTENE [Concomitant]
     Active Substance: PREDNISONE
  10. IDEOS [Concomitant]
     Active Substance: CALCIUM CARBONATE\CHOLECALCIFEROL
  11. BLINDED XL184 [Suspect]
     Active Substance: CABOZANTINIB
     Indication: MEDULLARY THYROID CANCER
     Dosage: 140 OR 60 MG, QD
     Route: 048
     Dates: start: 20180709
  12. ATORVASTATINA [Concomitant]
     Active Substance: ATORVASTATIN
  13. BLINDED XL184 [Suspect]
     Active Substance: CABOZANTINIB
     Dosage: 100 OR 40 MG, QD
     Route: 048
     Dates: start: 20180913
  14. ROCALTROL [Concomitant]
     Active Substance: CALCITRIOL
  15. XANAX [Concomitant]
     Active Substance: ALPRAZOLAM

REACTIONS (1)
  - Blood bilirubin increased [Recovered/Resolved]

NARRATIVE: CASE EVENT DATE: 20180904
